FAERS Safety Report 8575619-7 (Version None)
Quarter: 2012Q3

REPORT INFORMATION
  Report Type: 
  Country: None (occurrence: None)
  Receive Date: 20120807
  Receipt Date: 20120806
  Transmission Date: 20120928
  Serious: Yes (Other)
  Sender: FDA-Public Use
  Company Number: BR-PFIZER INC-2012146114

PATIENT
  Age: 86 Year
  Sex: Male

DRUGS (3)
  1. LAMOTRIGINE [Concomitant]
     Indication: PAIN
     Dosage: 25 MG (ONE TABLET), 1X/DAY
  2. MYTEDON [Concomitant]
     Indication: PAIN
     Dosage: 10 MG (ONE TABLET), 1X/DAY
  3. LYRICA [Suspect]
     Indication: PAIN
     Dosage: 150 MG (ONE CAPSULE), 2X/DAY
     Route: 048
     Dates: start: 20100616

REACTIONS (1)
  - PAIN IN EXTREMITY [None]
